FAERS Safety Report 8263121-1 (Version None)
Quarter: 2012Q2

REPORT INFORMATION
  Report Type: 
  Country: None (occurrence: None)
  Receive Date: 20120405
  Receipt Date: 20120328
  Transmission Date: 20120825
  Serious: Yes (Other)
  Sender: FDA-Public Use
  Company Number: US-US-EMD SERONO, INC.-7116073

PATIENT
  Sex: Female
  Weight: 69 kg

DRUGS (20)
  1. CALCIUM WITH VITAMIN D [Concomitant]
     Indication: SUPPLEMENTATION THERAPY
  2. CURINAL [Concomitant]
     Indication: GOUT
  3. ERYTHROMYCIN [Concomitant]
     Indication: HIDRADENITIS
  4. SUDAFED 12 HOUR [Concomitant]
     Indication: SINUS DISORDER
  5. AMPYRA [Concomitant]
     Indication: GAIT DISTURBANCE
  6. ALPRAZOLAM [Concomitant]
     Indication: ANXIETY
  7. HYDROCODONE BITARTRATE AND ACETAMINOPHEN [Concomitant]
     Indication: PAIN
  8. BPOLLEN [Concomitant]
     Indication: SUPPLEMENTATION THERAPY
  9. FISH OIL [Concomitant]
     Indication: SUPPLEMENTATION THERAPY
  10. SUPER B COMPLEX [Concomitant]
     Indication: SUPPLEMENTATION THERAPY
  11. MECLIZINE [Concomitant]
     Indication: DIZZINESS
  12. REBIF [Suspect]
     Indication: MULTIPLE SCLEROSIS
     Route: 058
     Dates: start: 20080307
  13. VITAMIN D [Concomitant]
     Indication: SUPPLEMENTATION THERAPY
  14. MULTI-VITAMIN [Concomitant]
     Indication: SUPPLEMENTATION THERAPY
  15. B-12 COMPLEX [Concomitant]
     Indication: SUPPLEMENTATION THERAPY
  16. CITALOPRAM HYDROBROMIDE [Concomitant]
     Indication: DEPRESSION
  17. MOTRIN [Concomitant]
     Indication: PREMEDICATION
  18. MELXOXICAM [Concomitant]
     Indication: INFLAMMATION
  19. COQ10 [Concomitant]
     Indication: SUPPLEMENTATION THERAPY
  20. UNSPECIFIED ANTIBIOTIC [Concomitant]
     Indication: HIDRADENITIS

REACTIONS (1)
  - CHOLELITHIASIS [None]
